FAERS Safety Report 4801932-2 (Version None)
Quarter: 2005Q4

REPORT INFORMATION
  Report Type: 
  Country: None (occurrence: None)
  Receive Date: 20051012
  Receipt Date: 20051005
  Transmission Date: 20060501
  Serious: Yes (Other)
  Sender: FDA-Public Use
  Company Number: HQWYE840405OCT05

PATIENT
  Age: 21 Year
  Sex: Male

DRUGS (3)
  1. INDERAL [Suspect]
     Indication: HYPERTENSION
     Dosage: ^OCCASIONAL ADMINISTERED^
  2. ATENOLOL [Suspect]
     Indication: HYPERTENSION
  3. PHENOXYBENZAMINE (PHENOXYBENZAMINE, ) [Suspect]
     Indication: HYPERTENSION

REACTIONS (8)
  - ASTHENIA [None]
  - CHEST PAIN [None]
  - GYNAECOMASTIA [None]
  - HYPOTENSION [None]
  - ORTHOSTATIC HYPOTENSION [None]
  - PULMONARY OEDEMA [None]
  - SYNCOPE [None]
  - TEMPERATURE REGULATION DISORDER [None]
